FAERS Safety Report 11208179 (Version 1)
Quarter: 2015Q2

REPORT INFORMATION
  Report Type: Spontaneous
  Country: US (occurrence: None)
  Receive Date: 20150619
  Receipt Date: 20150619
  Transmission Date: 20150821
  Serious: Yes (Hospitalization)
  Sender: FDA-Public Use
  Company Number: None

PATIENT
  Age: 87 Year
  Sex: Female
  Weight: 53.8 kg

DRUGS (11)
  1. RESTASIS [Concomitant]
     Active Substance: CYCLOSPORINE
  2. ATENOLOL. [Concomitant]
     Active Substance: ATENOLOL
  3. FOLVITE [Concomitant]
     Active Substance: FOLIC ACID
  4. WARFARIN [Suspect]
     Active Substance: WARFARIN
     Indication: ATRIAL FIBRILLATION
     Dosage: CHRONIC
     Route: 048
  5. LIPITOR [Concomitant]
     Active Substance: ATORVASTATIN CALCIUM
  6. CALCIUM CARB [Concomitant]
  7. THERATEARS [Concomitant]
     Active Substance: CARBOXYMETHYLCELLULOSE SODIUM
  8. LASIX [Concomitant]
     Active Substance: FUROSEMIDE
  9. FUROSEMIDE. [Concomitant]
     Active Substance: FUROSEMIDE
  10. ROCATROL [Concomitant]
  11. SPIRONOLACTONE. [Concomitant]
     Active Substance: SPIRONOLACTONE

REACTIONS (8)
  - Acute kidney injury [None]
  - Drug administration error [None]
  - International normalised ratio increased [None]
  - Hypophagia [None]
  - Ileus [None]
  - Urinary tract infection [None]
  - Confusional state [None]
  - Vitamin K deficiency [None]

NARRATIVE: CASE EVENT DATE: 20141024
